FAERS Safety Report 7234120-3 (Version None)
Quarter: 2011Q1

REPORT INFORMATION
  Report Type: 
  Country: None (occurrence: None)
  Receive Date: 20110119
  Receipt Date: 20110110
  Transmission Date: 20110831
  Serious: Yes (Hospitalization)
  Sender: FDA-Public Use
  Company Number: FR-ASTRAZENECA-2011SE02608

PATIENT
  Age: 64 Year
  Sex: Male

DRUGS (11)
  1. LASIX [Suspect]
     Route: 065
  2. CALCIDOSE [Suspect]
     Route: 065
     Dates: end: 20101227
  3. XATRAL [Suspect]
     Route: 048
  4. KARDEGIC [Concomitant]
  5. DAFALGAN [Concomitant]
  6. MOPRAL [Suspect]
     Route: 048
     Dates: start: 20101225, end: 20101227
  7. NOVOMIX [Suspect]
     Route: 058
  8. BICARBONATE DE SODIUM [Suspect]
     Route: 065
  9. TEMERIT [Concomitant]
  10. ROCEPHIN [Suspect]
     Route: 065
     Dates: start: 20101225, end: 20101227
  11. FUMAFER [Suspect]
     Route: 048

REACTIONS (2)
  - BICYTOPENIA [None]
  - NEUTROPHIL COUNT DECREASED [None]
